FAERS Safety Report 6091156-6 (Version None)
Quarter: 2009Q1

REPORT INFORMATION
  Report Type: 
  Country: None (occurrence: None)
  Receive Date: 20090223
  Receipt Date: 20090223
  Transmission Date: 20090719
  Serious: Yes (Other)
  Sender: FDA-Public Use
  Company Number: None

PATIENT
  Age: 11 Year
  Sex: Male
  Weight: 50 kg

DRUGS (2)
  1. CLONIDINE [Suspect]
     Indication: ATTENTION DEFICIT/HYPERACTIVITY DISORDER
     Dosage: 0.1 MG 1/2 TAB PO BID
     Route: 048
     Dates: start: 20061001, end: 20061101
  2. ADDERALL XR 20 [Concomitant]

REACTIONS (3)
  - CHEST PAIN [None]
  - DRUG INTOLERANCE [None]
  - TACHYCARDIA [None]
